FAERS Safety Report 5663509-9 (Version None)
Quarter: 2008Q1

REPORT INFORMATION
  Report Type: 
  Country: None (occurrence: None)
  Receive Date: 20080307
  Receipt Date: 20080227
  Transmission Date: 20080703
  Serious: Yes (Hospitalization)
  Sender: FDA-Public Use
  Company Number: 220032J08USA

PATIENT
  Age: 53 Year
  Sex: Female

DRUGS (1)
  1. SAIZEN [Suspect]
     Indication: GROWTH HORMONE DEFICIENCY
     Dosage: 0.35 MG, SUBCUTANEOUS
     Route: 058
     Dates: end: 20071201

REACTIONS (2)
  - CRANIOPHARYNGIOMA [None]
  - PNEUMONIA ASPIRATION [None]
